FAERS Safety Report 13154089 (Version 1)
Quarter: 2017Q1

REPORT INFORMATION
  Report Type: Spontaneous
  Country: US (occurrence: US)
  Receive Date: 20170124
  Receipt Date: 20170124
  Transmission Date: 20170428
  Serious: Yes (Hospitalization)
  Sender: FDA-Public Use
  Company Number: None

PATIENT
  Age: 44 Year
  Sex: Female
  Weight: 134.2 kg

DRUGS (2)
  1. CARBOPLATIN. [Suspect]
     Active Substance: CARBOPLATIN
     Dates: end: 20170110
  2. TAXOL [Suspect]
     Active Substance: PACLITAXEL
     Dates: end: 20170110

REACTIONS (4)
  - Vomiting [None]
  - Nausea [None]
  - Drug intolerance [None]
  - Abdominal pain [None]

NARRATIVE: CASE EVENT DATE: 20170115
